FAERS Safety Report 23156867 (Version 2)
Quarter: 2025Q2

REPORT INFORMATION
  Report Type: Spontaneous
  Country: US (occurrence: US)
  Receive Date: 20231108
  Receipt Date: 20250417
  Transmission Date: 20250717
  Serious: No
  Sender: ROCHE
  Company Number: US-ROCHE-3452468

PATIENT

DRUGS (2)
  1. OCREVUS [Suspect]
     Active Substance: OCRELIZUMAB
     Indication: Multiple sclerosis
     Route: 065
  2. AVONEX [Concomitant]
     Active Substance: INTERFERON BETA-1A

REACTIONS (2)
  - COVID-19 [Unknown]
  - Immunodeficiency [Unknown]
